FAERS Safety Report 13660452 (Version 3)
Quarter: 2017Q3

REPORT INFORMATION
  Report Type: Report from Study
  Country: DE (occurrence: DE)
  Receive Date: 20170616
  Receipt Date: 20170901
  Transmission Date: 20171127
  Serious: Yes (Hospitalization)
  Sender: FDA-Public Use
  Company Number: DE-CELGENEUS-DEU-20170510573

PATIENT
  Age: 64 Year
  Sex: Male
  Weight: 65 kg

DRUGS (14)
  1. NEUPOGEN [Concomitant]
     Active Substance: FILGRASTIM
     Indication: PROPHYLAXIS
     Dosage: .5 MILLILITER
     Route: 041
     Dates: start: 20170512, end: 20170512
  2. PALONOSETRON [Concomitant]
     Active Substance: PALONOSETRON
     Dosage: .25 MILLIGRAM
     Route: 041
     Dates: start: 20170512, end: 20170512
  3. ABRAXANE [Suspect]
     Active Substance: PACLITAXEL
     Indication: NON-SMALL CELL LUNG CANCER
     Route: 041
     Dates: start: 20170421
  4. NEUPOGEN [Concomitant]
     Active Substance: FILGRASTIM
     Dosage: 300 MICROGRAM
     Route: 041
     Dates: start: 20170519, end: 20170521
  5. CARBOPLATIN. [Suspect]
     Active Substance: CARBOPLATIN
     Indication: NON-SMALL CELL LUNG CANCER
     Dosage: 6 MG MIN/ML
     Route: 041
     Dates: start: 20170421, end: 20170512
  6. DEXAMETHASONE. [Concomitant]
     Active Substance: DEXAMETHASONE
     Indication: PROPHYLAXIS
     Dosage: 20 MILLIGRAM
     Route: 041
     Dates: start: 20170421, end: 20170421
  7. CLEXANE [Concomitant]
     Active Substance: ENOXAPARIN SODIUM
     Indication: PROPHYLAXIS
     Dosage: .4 MILLILITER
     Route: 058
     Dates: start: 20170527, end: 20170528
  8. PALONOSETRON [Concomitant]
     Active Substance: PALONOSETRON
     Indication: PROPHYLAXIS
     Dosage: .25 MILLIGRAM
     Route: 041
     Dates: start: 20170421, end: 20170421
  9. DEXAMETHASONE. [Concomitant]
     Active Substance: DEXAMETHASONE
     Dosage: 20 MILLIGRAM
     Route: 041
     Dates: start: 20170512, end: 20170512
  10. PALONOSETRON [Concomitant]
     Active Substance: PALONOSETRON
     Dosage: .25 MILLIGRAM
     Route: 041
     Dates: start: 20170505, end: 20170505
  11. PALONOSETRON [Concomitant]
     Active Substance: PALONOSETRON
     Dosage: .25 MILLIGRAM
     Route: 041
     Dates: start: 20170428, end: 20170428
  12. ABRAXANE [Suspect]
     Active Substance: PACLITAXEL
     Route: 041
     Dates: start: 20170512, end: 20170512
  13. NEUPOGEN [Concomitant]
     Active Substance: FILGRASTIM
     Dosage: .5 MILLILITER
     Route: 058
     Dates: start: 20170519, end: 20170521
  14. CLEXANE [Concomitant]
     Active Substance: ENOXAPARIN SODIUM
     Dosage: .4 MILLILITER
     Route: 058
     Dates: start: 20170530

REACTIONS (5)
  - Stomatitis [Recovered/Resolved]
  - Hypokalaemia [Recovered/Resolved]
  - Acute kidney injury [Not Recovered/Not Resolved]
  - Dehydration [Recovered/Resolved]
  - Leukopenia [Recovered/Resolved]

NARRATIVE: CASE EVENT DATE: 20170512
